FAERS Safety Report 6918224-8 (Version None)
Quarter: 2010Q3

REPORT INFORMATION
  Report Type: 
  Country: None (occurrence: None)
  Receive Date: 20100806
  Receipt Date: 20100803
  Transmission Date: 20110219
  Serious: Yes (Other)
  Sender: FDA-Public Use
  Company Number: A0873699A

PATIENT
  Sex: Female

DRUGS (1)
  1. ASPIRIN +CAFFEINE + SALCYLAMIDE (FORMULATION UNKNOWN) )ASPRIRIN + CADD [Suspect]
     Dosage: ORAL
     Route: 048

REACTIONS (1)
  - EAR HAEMORRHAGE [None]
